FAERS Safety Report 7037965-8 (Version None)
Quarter: 2010Q4

REPORT INFORMATION
  Report Type: 
  Country: None (occurrence: None)
  Receive Date: 20101011
  Receipt Date: 20100901
  Transmission Date: 20110411
  Serious: Yes (Death, Life-Threatening, Other)
  Sender: FDA-Public Use
  Company Number: US-BAXTER-2009BH018171

PATIENT
  Age: 58 Year
  Sex: Female

DRUGS (72)
  1. HEPARIN SODIUM INJECTION [Suspect]
     Indication: HAEMODIALYSIS
     Route: 058
     Dates: start: 20070930, end: 20071004
  2. HEPARIN SODIUM INJECTION [Suspect]
     Indication: THROMBOSIS PROPHYLAXIS
     Route: 058
     Dates: start: 20070930, end: 20071004
  3. HEPARIN SODIUM INJECTION [Suspect]
     Route: 042
     Dates: start: 20071009, end: 20071223
  4. HEPARIN SODIUM INJECTION [Suspect]
     Route: 042
     Dates: start: 20071009, end: 20071223
  5. HEPARIN SODIUM INJECTION [Suspect]
     Route: 042
     Dates: start: 20071024, end: 20071024
  6. HEPARIN SODIUM INJECTION [Suspect]
     Route: 042
     Dates: start: 20071024, end: 20071024
  7. HEPARIN SODIUM INJECTION [Suspect]
     Route: 042
     Dates: start: 20070101, end: 20070101
  8. HEPARIN SODIUM INJECTION [Suspect]
     Route: 042
     Dates: start: 20070101, end: 20070101
  9. HEPARIN SODIUM INJECTION [Suspect]
     Route: 042
     Dates: start: 20071003, end: 20071003
  10. HEPARIN SODIUM INJECTION [Suspect]
     Route: 042
     Dates: start: 20071003, end: 20071003
  11. HEPARIN SODIUM INJECTION [Suspect]
     Route: 042
     Dates: start: 20071012
  12. HEPARIN SODIUM INJECTION [Suspect]
     Route: 042
     Dates: start: 20071012
  13. HEPARIN SODIUM INJECTION [Suspect]
     Route: 042
     Dates: start: 20070101, end: 20070101
  14. HEPARIN SODIUM INJECTION [Suspect]
     Route: 042
     Dates: start: 20070101, end: 20070101
  15. HEPARIN SODIUM INJECTION [Suspect]
     Route: 042
     Dates: start: 20071005, end: 20071005
  16. HEPARIN SODIUM INJECTION [Suspect]
     Route: 042
     Dates: start: 20071005, end: 20071005
  17. HEPARIN SODIUM INJECTION [Suspect]
     Route: 042
     Dates: start: 20071012, end: 20071012
  18. HEPARIN SODIUM INJECTION [Suspect]
     Route: 042
     Dates: start: 20071012, end: 20071012
  19. HEPARIN SODIUM INJECTION [Suspect]
     Route: 042
     Dates: start: 20070101, end: 20070101
  20. HEPARIN SODIUM INJECTION [Suspect]
     Route: 042
     Dates: start: 20070101, end: 20070101
  21. HEPARIN SODIUM INJECTION [Suspect]
     Route: 042
     Dates: start: 20071006, end: 20071006
  22. HEPARIN SODIUM INJECTION [Suspect]
     Route: 042
     Dates: start: 20071006, end: 20071006
  23. HEPARIN SODIUM INJECTION [Suspect]
     Route: 042
     Dates: start: 20071004, end: 20071004
  24. HEPARIN SODIUM INJECTION [Suspect]
     Route: 042
     Dates: start: 20071004, end: 20071004
  25. HEPARIN SODIUM INJECTION [Suspect]
     Route: 042
     Dates: start: 20070101, end: 20070101
  26. HEPARIN SODIUM INJECTION [Suspect]
     Route: 042
     Dates: start: 20070101, end: 20070101
  27. HEPARIN SODIUM INJECTION [Suspect]
     Route: 042
     Dates: start: 20071002, end: 20071002
  28. HEPARIN SODIUM INJECTION [Suspect]
     Route: 042
     Dates: start: 20071002, end: 20071002
  29. HEPARIN SODIUM INJECTION [Suspect]
     Route: 042
     Dates: start: 20070101, end: 20070101
  30. HEPARIN SODIUM INJECTION [Suspect]
     Route: 042
     Dates: start: 20070101, end: 20070101
  31. HEPARIN SODIUM INJECTION [Suspect]
     Route: 042
     Dates: start: 20070101, end: 20070101
  32. HEPARIN SODIUM INJECTION [Suspect]
     Route: 042
     Dates: start: 20070101, end: 20070101
  33. HEPARIN SODIUM INJECTION [Suspect]
     Route: 042
     Dates: start: 20070101, end: 20070101
  34. HEPARIN SODIUM INJECTION [Suspect]
     Route: 042
     Dates: start: 20070101, end: 20070101
  35. HEPARIN SODIUM INJECTION [Suspect]
     Route: 042
     Dates: start: 20070101, end: 20070101
  36. HEPARIN SODIUM INJECTION [Suspect]
     Route: 042
     Dates: start: 20070101, end: 20070101
  37. HEPARIN SODIUM INJECTION [Suspect]
     Route: 042
     Dates: start: 20071223, end: 20071223
  38. HEPARIN SODIUM INJECTION [Suspect]
     Route: 042
     Dates: start: 20071223, end: 20071223
  39. HEPARIN SODIUM INJECTION [Suspect]
     Route: 042
     Dates: start: 20071223, end: 20071223
  40. HEPARIN SODIUM INJECTION [Suspect]
     Route: 042
     Dates: start: 20071223, end: 20071223
  41. HEPARIN SODIUM INJECTION [Suspect]
     Route: 042
     Dates: start: 20071223, end: 20071223
  42. HEPARIN SODIUM INJECTION [Suspect]
     Route: 042
     Dates: start: 20071223, end: 20071223
  43. ALLOPURINOL [Concomitant]
     Indication: PRODUCT USED FOR UNKNOWN INDICATION
     Route: 048
  44. ALPRAZOLAM [Concomitant]
     Indication: PRODUCT USED FOR UNKNOWN INDICATION
     Route: 065
  45. ENTERIC ASPIRIN [Concomitant]
     Indication: PRODUCT USED FOR UNKNOWN INDICATION
     Route: 065
  46. PLAVIX [Concomitant]
     Indication: PRODUCT USED FOR UNKNOWN INDICATION
     Route: 065
  47. LASIX [Concomitant]
     Indication: PRODUCT USED FOR UNKNOWN INDICATION
     Route: 048
  48. FENOFIBRATE [Concomitant]
     Indication: PRODUCT USED FOR UNKNOWN INDICATION
     Route: 048
  49. NEURONTIN [Concomitant]
     Indication: PRODUCT USED FOR UNKNOWN INDICATION
     Route: 048
  50. LOPRESSOR [Concomitant]
     Indication: PRODUCT USED FOR UNKNOWN INDICATION
     Route: 048
  51. CLARITIN [Concomitant]
     Indication: PRODUCT USED FOR UNKNOWN INDICATION
     Route: 048
  52. ACTOS [Concomitant]
     Indication: PRODUCT USED FOR UNKNOWN INDICATION
     Route: 048
  53. CALCITRIOL [Concomitant]
     Indication: PRODUCT USED FOR UNKNOWN INDICATION
     Route: 065
  54. KLOR-CON [Concomitant]
     Indication: PRODUCT USED FOR UNKNOWN INDICATION
     Route: 065
  55. GLIPIZIDE [Concomitant]
     Indication: PRODUCT USED FOR UNKNOWN INDICATION
     Route: 065
  56. ZOLOFT [Concomitant]
     Indication: PRODUCT USED FOR UNKNOWN INDICATION
     Route: 065
  57. ALPRAZOLAM [Concomitant]
     Route: 065
  58. ASPIRIN [Concomitant]
     Indication: PRODUCT USED FOR UNKNOWN INDICATION
     Route: 065
  59. FUROSEMIDE [Concomitant]
     Indication: PRODUCT USED FOR UNKNOWN INDICATION
     Route: 065
  60. GABAPENTIN [Concomitant]
     Indication: PRODUCT USED FOR UNKNOWN INDICATION
     Route: 065
  61. ACETAMINOPHEN [Concomitant]
     Indication: PRODUCT USED FOR UNKNOWN INDICATION
     Route: 065
  62. NITROSTAT [Concomitant]
     Indication: PRODUCT USED FOR UNKNOWN INDICATION
     Route: 060
  63. EPOGEN [Concomitant]
     Indication: PRODUCT USED FOR UNKNOWN INDICATION
     Route: 058
  64. DIPHENHYDRAMINE [Concomitant]
     Indication: PRODUCT USED FOR UNKNOWN INDICATION
     Route: 065
  65. DEXTROSE [Concomitant]
     Indication: PRODUCT USED FOR UNKNOWN INDICATION
     Route: 065
  66. NEPHROCAPS [Concomitant]
     Indication: PRODUCT USED FOR UNKNOWN INDICATION
     Route: 048
  67. NPH INSULIN [Concomitant]
     Indication: PRODUCT USED FOR UNKNOWN INDICATION
     Route: 065
  68. NOVOLOG [Concomitant]
     Indication: PRODUCT USED FOR UNKNOWN INDICATION
     Route: 065
  69. FOSRENOL [Concomitant]
     Indication: PRODUCT USED FOR UNKNOWN INDICATION
     Route: 048
  70. PRILOSEC [Concomitant]
     Indication: PRODUCT USED FOR UNKNOWN INDICATION
     Route: 065
  71. PROCRIT [Concomitant]
     Indication: PRODUCT USED FOR UNKNOWN INDICATION
     Route: 065
  72. NASONEX [Concomitant]
     Indication: PRODUCT USED FOR UNKNOWN INDICATION
     Route: 065

REACTIONS (20)
  - ABDOMINAL PAIN [None]
  - ACUTE MYOCARDIAL INFARCTION [None]
  - ANAEMIA [None]
  - ARTERIOSCLEROSIS CORONARY ARTERY [None]
  - ASTHENIA [None]
  - CARDIO-RESPIRATORY ARREST [None]
  - CHEST PAIN [None]
  - DIARRHOEA [None]
  - DYSPNOEA [None]
  - ELECTROMECHANICAL DISSOCIATION [None]
  - FEELING COLD [None]
  - HYPERTENSION [None]
  - HYPOTENSION [None]
  - LOSS OF CONSCIOUSNESS [None]
  - MALAISE [None]
  - NAUSEA [None]
  - NERVOUSNESS [None]
  - OEDEMA [None]
  - TYPE 2 DIABETES MELLITUS [None]
  - VOMITING [None]
